FAERS Safety Report 13874640 (Version 1)
Quarter: 2017Q3

REPORT INFORMATION
  Report Type: Spontaneous
  Country: US (occurrence: US)
  Receive Date: 20170816
  Receipt Date: 20170816
  Transmission Date: 20171127
  Serious: No
  Sender: FDA-Public Use
  Company Number: US-ROCHE-1015459

PATIENT
  Age: 88 Year
  Sex: Female

DRUGS (7)
  1. IPRATROPIUM BROMIDE. [Concomitant]
     Active Substance: IPRATROPIUM BROMIDE
  2. ASA [Concomitant]
     Active Substance: ASPIRIN
     Route: 065
  3. POLYMYXIN [Concomitant]
     Active Substance: POLYMYXIN
     Dosage: 1/1 GTT, PRE/POST TREATMENT
     Route: 065
  4. LUCENTIS [Suspect]
     Active Substance: RANIBIZUMAB
     Indication: SUBRETINAL FLUID
     Dosage: OF 4- 6 WEEKS
     Route: 050
     Dates: start: 20100618, end: 20120316
  5. ALENDRONATE [Concomitant]
     Active Substance: ALENDRONATE SODIUM
     Route: 065
  6. CALCIUM D 500 [Concomitant]
     Active Substance: CALCIUM\VITAMIN D
  7. TRIMETHOPRIM. [Concomitant]
     Active Substance: TRIMETHOPRIM

REACTIONS (3)
  - Visual impairment [Recovered/Resolved]
  - Vitreous floaters [Unknown]
  - Intraocular pressure increased [Unknown]

NARRATIVE: CASE EVENT DATE: 20110318
